FAERS Safety Report 6902448-X (Version None)
Quarter: 2010Q3

REPORT INFORMATION
  Report Type: 
  Country: None (occurrence: None)
  Receive Date: 20100803
  Receipt Date: 20080527
  Transmission Date: 20110219
  Serious: No
  Sender: FDA-Public Use
  Company Number: US-PFIZER INC-2008045794

PATIENT
  Sex: Male
  Weight: 67.7 kg

DRUGS (7)
  1. LYRICA [Suspect]
     Indication: PAIN
     Dates: start: 20080501, end: 20080525
  2. ATIVAN [Concomitant]
  3. ASCORBIC ACID [Concomitant]
  4. VITAMIN D [Concomitant]
  5. CALCIUM [Concomitant]
  6. ULTRAM [Concomitant]
  7. REMERON [Concomitant]

REACTIONS (5)
  - CONSTIPATION [None]
  - DIZZINESS [None]
  - NAUSEA [None]
  - SOMNOLENCE [None]
  - VERTIGO [None]
